FAERS Safety Report 5151813-2 (Version None)
Quarter: 2006Q4

REPORT INFORMATION
  Report Type: 
  Country: None (occurrence: None)
  Receive Date: 20061109
  Receipt Date: 20061027
  Transmission Date: 20070319
  Serious: Yes (Other)
  Sender: FDA-Public Use
  Company Number: CHPA2006US10762

PATIENT
  Sex: Female

DRUGS (1)
  1. EXCEDRIN (MIGRAINE) [Suspect]
     Dosage: 19 DF, ONCE/SINGLE, ORAL
     Route: 048
     Dates: start: 20061027, end: 20061027

REACTIONS (4)
  - ABDOMINAL PAIN [None]
  - NAUSEA [None]
  - OVERDOSE [None]
  - TINNITUS [None]
